FAERS Safety Report 18903977 (Version 8)
Quarter: 2022Q2

REPORT INFORMATION
  Report Type: Report from Study
  Country: US (occurrence: US)
  Receive Date: 20210217
  Receipt Date: 20220422
  Transmission Date: 20220721
  Serious: Yes (Death, Other)
  Sender: FDA-Public Use
  Company Number: US-GLAXOSMITHKLINE-US2021AMR011895

PATIENT
  Age: 67 Year
  Sex: Female

DRUGS (5)
  1. BELANTAMAB MAFODOTIN [Suspect]
     Active Substance: BELANTAMAB MAFODOTIN
     Indication: Product used for unknown indication
     Dosage: UNK
     Dates: start: 20201112, end: 20220120
  2. BELANTAMAB MAFODOTIN [Suspect]
     Active Substance: BELANTAMAB MAFODOTIN
     Dosage: 200 MG
     Dates: start: 20201112
  3. BELANTAMAB MAFODOTIN [Suspect]
     Active Substance: BELANTAMAB MAFODOTIN
     Dosage: 200 MG
     Dates: start: 20201203
  4. BELANTAMAB MAFODOTIN [Suspect]
     Active Substance: BELANTAMAB MAFODOTIN
     Dosage: 200 MG
     Dates: start: 20201228
  5. BELANTAMAB MAFODOTIN [Suspect]
     Active Substance: BELANTAMAB MAFODOTIN
     Dosage: 175 MG
     Dates: start: 20210121

REACTIONS (5)
  - Death [Fatal]
  - Keratopathy [Recovered/Resolved]
  - Visual acuity reduced [Unknown]
  - Night blindness [Unknown]
  - Dry eye [Unknown]

NARRATIVE: CASE EVENT DATE: 20210208
